FAERS Safety Report 20689650 (Version 6)
Quarter: 2022Q3

REPORT INFORMATION
  Report Type: Spontaneous
  Country: US (occurrence: US)
  Receive Date: 20220408
  Receipt Date: 20220920
  Transmission Date: 20221026
  Serious: No
  Sender: FDA-Public Use
  Company Number: US-GLAXOSMITHKLINE-US2022AMR059511

PATIENT
  Sex: Female

DRUGS (3)
  1. ZEJULA [Suspect]
     Active Substance: NIRAPARIB
     Indication: Product used for unknown indication
     Dosage: 200 MG, QD
  2. ZEJULA [Suspect]
     Active Substance: NIRAPARIB
     Dosage: 1 DF, BID (1 CAPSULE TWICE DAILY)
  3. ZEJULA [Suspect]
     Active Substance: NIRAPARIB
     Dosage: 200 MG, QD

REACTIONS (9)
  - Memory impairment [Not Recovered/Not Resolved]
  - Feeling abnormal [Unknown]
  - Sleep disorder [Unknown]
  - Thinking abnormal [Not Recovered/Not Resolved]
  - Headache [Unknown]
  - Initial insomnia [Unknown]
  - Fatigue [Recovering/Resolving]
  - Off label use [Unknown]
  - Therapeutic response unexpected [Unknown]
